FAERS Safety Report 7562818-6 (Version None)
Quarter: 2011Q2

REPORT INFORMATION
  Report Type: 
  Country: None (occurrence: None)
  Receive Date: 20110622
  Receipt Date: 20110607
  Transmission Date: 20111010
  Serious: Yes (Life-Threatening, Hospitalization)
  Sender: FDA-Public Use
  Company Number: US-ROCHE-713970

PATIENT
  Sex: Female

DRUGS (5)
  1. CARBOPLATIN [Suspect]
     Indication: BREAST CANCER
     Dosage: AUC 6 OVER 30 MIN ON DAY 1 OF WEEKS 1,4,7 AND 10.
     Route: 042
     Dates: start: 20100423
  2. BEVACIZUMAB [Suspect]
     Indication: BREAST CANCER
     Dosage: MOST RECENT DOSE:20 MAY 2010.FREQUENCY:OVER 30-90 MIN ON DAY 1 OF WKS 1,3,5,7,9,11,13,15 AND 17.
     Route: 065
     Dates: start: 20100423, end: 20100520
  3. DOXORUBICIN HCL [Suspect]
     Indication: BREAST CANCER
     Dosage: FREQUENCY:OVER 5-10 MIN ON DAY 1 OF WEEKS 13,15,17 AND 19.
     Route: 042
     Dates: start: 20100423
  4. CYCLOPHOSPHAMIDE [Suspect]
     Indication: BREAST CANCER
     Dosage: FREQUENCY:OVER 5-30 MIN ON DAY 1OF WEEKS 13,15,17 AND 19.
     Route: 042
     Dates: start: 20100423
  5. PACLITAXEL [Suspect]
     Indication: BREAST CANCER
     Dosage: FREQUENCY:OVER 1 HOUR ON DAY 1 OF WEEKS 1-12.
     Route: 042
     Dates: start: 20100423

REACTIONS (8)
  - RECTAL HAEMORRHAGE [None]
  - VASCULAR ACCESS COMPLICATION [None]
  - HYPONATRAEMIA [None]
  - ANAEMIA [None]
  - DYSPEPSIA [None]
  - HYPOKALAEMIA [None]
  - DEPRESSION [None]
  - ANXIETY [None]
